FAERS Safety Report 12237811 (Version 1)
Quarter: 2016Q2

REPORT INFORMATION
  Report Type: Spontaneous
  Country: US (occurrence: None)
  Receive Date: 20160404
  Receipt Date: 20160404
  Transmission Date: 20160815
  Serious: Yes (Hospitalization, Other)
  Sender: FDA-Public Use
  Company Number: None

PATIENT
  Age: 57 Year
  Sex: Female
  Weight: 62.14 kg

DRUGS (11)
  1. ESTRACE [Concomitant]
     Active Substance: ESTRADIOL
  2. VALTREX [Concomitant]
     Active Substance: VALACYCLOVIR HYDROCHLORIDE
  3. LORAZEPAM. [Concomitant]
     Active Substance: LORAZEPAM
  4. TOPIIRAMTE, 25 MG [Suspect]
     Active Substance: TOPIRAMATE
     Indication: HEADACHE
     Dosage: 2 TABLET(S) TWICE A DAY TAKEN BY MOUTH
     Route: 048
     Dates: start: 20160126, end: 20160313
  5. BACLOFEN. [Concomitant]
     Active Substance: BACLOFEN
  6. CRESTOR [Concomitant]
     Active Substance: ROSUVASTATIN CALCIUM
  7. ZETIA [Concomitant]
     Active Substance: EZETIMIBE
  8. ATENOLOL. [Concomitant]
     Active Substance: ATENOLOL
  9. COQ10 [Suspect]
     Active Substance: UBIDECARENONE
  10. MULTIVITAMIN [Concomitant]
     Active Substance: VITAMINS
  11. VITAMIN D3 [Concomitant]
     Active Substance: CHOLECALCIFEROL

REACTIONS (11)
  - Feeling abnormal [None]
  - Depression [None]
  - Disturbance in attention [None]
  - Anxiety [None]
  - Feeding disorder [None]
  - Fluid intake reduced [None]
  - Middle insomnia [None]
  - Impaired work ability [None]
  - Therapy change [None]
  - Nightmare [None]
  - Diarrhoea [None]

NARRATIVE: CASE EVENT DATE: 20160312
